FAERS Safety Report 7035645-6 (Version None)
Quarter: 2010Q4

REPORT INFORMATION
  Report Type: 
  Country: None (occurrence: None)
  Receive Date: 20101008
  Receipt Date: 20100930
  Transmission Date: 20110411
  Serious: Yes (Hospitalization)
  Sender: FDA-Public Use
  Company Number: FR-EISAI INC.-E3810-04124-SPO-FR

PATIENT
  Sex: Female

DRUGS (9)
  1. PARIET (RABEPRAZOLE) [Suspect]
     Route: 048
     Dates: start: 20100223
  2. ROCGEL [Suspect]
     Route: 048
     Dates: start: 20100223, end: 20100315
  3. PREVISCAN [Suspect]
     Indication: ATRIAL FIBRILLATION
     Route: 048
     Dates: start: 20100101, end: 20100315
  4. GAVISCON NOS [Concomitant]
     Route: 048
     Dates: start: 20100316
  5. CORDARONE [Concomitant]
     Indication: ATRIAL FIBRILLATION
     Route: 048
  6. LASIX [Concomitant]
     Indication: HYPERTENSION
     Route: 048
  7. MICARDIS [Concomitant]
     Route: 048
  8. DOMPERIDONE [Concomitant]
     Route: 048
  9. RIVOTRIL [Concomitant]
     Indication: DIABETIC NEUROPATHY
     Route: 048

REACTIONS (1)
  - INTERNATIONAL NORMALISED RATIO INCREASED [None]
